FAERS Safety Report 16064628 (Version 1)
Quarter: 2019Q1

REPORT INFORMATION
  Report Type: Spontaneous
  Country: US (occurrence: US)
  Receive Date: 20190312
  Receipt Date: 20190312
  Transmission Date: 20190418
  Serious: No
  Sender: FDA-Public Use
  Company Number: PHHY2019US054195

PATIENT
  Age: 93 Year
  Sex: Male

DRUGS (1)
  1. SYSTANE COMPLETE [Suspect]
     Active Substance: PROPYLENE GLYCOL
     Indication: EYE LUBRICATION THERAPY
     Route: 047

REACTIONS (2)
  - Product quality issue [Unknown]
  - Vision blurred [Not Recovered/Not Resolved]
